FAERS Safety Report 25411588 (Version 1)
Quarter: 2025Q2

REPORT INFORMATION
  Report Type: Spontaneous
  Country: ES (occurrence: ES)
  Receive Date: 20250609
  Receipt Date: 20250609
  Transmission Date: 20250716
  Serious: Yes (Death)
  Sender: HETERO
  Company Number: ES-AMAROX PHARMA-AMR2025ES02910

PATIENT
  Age: 44 Year
  Sex: Female

DRUGS (1)
  1. IBUPROFEN [Suspect]
     Active Substance: IBUPROFEN
     Indication: Product used for unknown indication
     Route: 065

REACTIONS (1)
  - Drug-induced liver injury [Fatal]
